FAERS Safety Report 6390866-0 (Version None)
Quarter: 2009Q4

REPORT INFORMATION
  Report Type: 
  Country: None (occurrence: None)
  Receive Date: 20091003
  Receipt Date: 20090918
  Transmission Date: 20100525
  Serious: Yes (Other)
  Sender: FDA-Public Use
  Company Number: DSM-2009-01369

PATIENT
  Age: 81 Year
  Sex: Female
  Weight: 75 kg

DRUGS (4)
  1. SEVIKAR (OLMESARTAN MEDOXOMIL/AMLODIPINE BESILATE) (TABLET) [Suspect]
     Indication: ESSENTIAL HYPERTENSION
     Dosage: 40/5 MG (1 IN 1 D), ORAL
     Route: 048
     Dates: start: 20090428, end: 20090704
  2. BETA BLOCKER (BETA BLOCKING AGENTS) [Concomitant]
  3. ACETYLSALICYLIC ACID SRT [Concomitant]
  4. JUNIK (BEDOMETASONE) [Concomitant]

REACTIONS (2)
  - COUGH [None]
  - OEDEMA [None]
